FAERS Safety Report 5726645-4 (Version None)
Quarter: 2008Q2

REPORT INFORMATION
  Report Type: 
  Country: None (occurrence: None)
  Receive Date: 20080502
  Receipt Date: 20080421
  Transmission Date: 20081010
  Serious: Yes (Other)
  Sender: FDA-Public Use
  Company Number: US-JNJFOC-20080405670

PATIENT
  Sex: Female

DRUGS (13)
  1. PARACETAMOL [Suspect]
  2. PARACETAMOL [Suspect]
     Indication: PYREXIA
  3. KETEK [Suspect]
     Indication: BRONCHITIS
     Route: 048
  4. KETEK [Suspect]
     Indication: PNEUMONIA
     Route: 048
  5. METHYLPREDNISOLONE [Concomitant]
  6. ALBUTEROL [Concomitant]
  7. SALBUTAMOL SULFATE [Concomitant]
  8. FLUTICASONE PROPIONATE [Concomitant]
  9. ADVAIR HFA [Concomitant]
  10. DELSYM [Concomitant]
  11. PENICILLIN [Concomitant]
  12. AMBIEN [Concomitant]
  13. VITAMIN D [Concomitant]

REACTIONS (2)
  - HEPATITIS [None]
  - MUSCULOSKELETAL CHEST PAIN [None]
